FAERS Safety Report 24841985 (Version 1)
Quarter: 2025Q1

REPORT INFORMATION
  Report Type: Spontaneous
  Country: US (occurrence: US)
  Receive Date: 20250114
  Receipt Date: 20250114
  Transmission Date: 20250409
  Serious: No
  Sender: ALEXION PHARMACEUTICALS
  Company Number: US-AstraZeneca-CH-00785232A

PATIENT

DRUGS (4)
  1. WAINUA [Suspect]
     Active Substance: EPLONTERSEN
     Indication: Product used for unknown indication
     Route: 065
  2. WAINUA [Suspect]
     Active Substance: EPLONTERSEN
     Route: 065
  3. WAINUA [Suspect]
     Active Substance: EPLONTERSEN
     Route: 065
  4. WAINUA [Suspect]
     Active Substance: EPLONTERSEN
     Route: 065

REACTIONS (1)
  - Skin abrasion [Unknown]
